FAERS Safety Report 7331278-2 (Version None)
Quarter: 2011Q1

REPORT INFORMATION
  Report Type: 
  Country: None (occurrence: None)
  Receive Date: 20110228
  Receipt Date: 20110228
  Transmission Date: 20110831
  Serious: Yes (Other)
  Sender: FDA-Public Use
  Company Number: None

PATIENT
  Sex: Male
  Weight: 145.151 kg

DRUGS (1)
  1. INTRON A [Suspect]
     Indication: MALIGNANT MELANOMA
     Dosage: 17 MIN SQ TIW
     Route: 058
     Dates: start: 20100719

REACTIONS (2)
  - PREGNANCY OF PARTNER [None]
  - DRUG EXPOSURE DURING PREGNANCY [None]
